FAERS Safety Report 18844609 (Version 1)
Quarter: 2021Q1

REPORT INFORMATION
  Report Type: Report from Study
  Country: DE (occurrence: DE)
  Receive Date: 20210203
  Receipt Date: 20210203
  Transmission Date: 20210419
  Serious: No
  Sender: FDA-Public Use
  Company Number: DE-EXELIXIS-CABO-20027685

PATIENT
  Age: 75 Year
  Sex: Male

DRUGS (5)
  1. AXITINIB [Suspect]
     Active Substance: AXITINIB
     Indication: METASTASES TO LUNG
  2. CABOMETYX [Suspect]
     Active Substance: CABOZANTINIB S-MALATE
     Indication: METASTATIC RENAL CELL CARCINOMA
     Dosage: 40 MG, QD
     Route: 048
     Dates: start: 20200203
  3. NIVOLUMAB [Suspect]
     Active Substance: NIVOLUMAB
     Indication: METASTASES TO LUNG
  4. AXITINIB [Suspect]
     Active Substance: AXITINIB
     Indication: PULMONARY EMBOLISM
     Dosage: UNK
     Dates: start: 201910
  5. NIVOLUMAB [Suspect]
     Active Substance: NIVOLUMAB
     Indication: PULMONARY EMBOLISM
     Dosage: UNK
     Dates: start: 201911

REACTIONS (1)
  - General physical health deterioration [Unknown]

NARRATIVE: CASE EVENT DATE: 20200217
